FAERS Safety Report 8381865-8 (Version None)
Quarter: 2012Q1

REPORT INFORMATION
  Report Type: 
  Country: None (occurrence: None)
  Receive Date: 20120323
  Receipt Date: 20110513
  Transmission Date: 20120608
  Serious: Yes (Other)
  Sender: FDA-Public Use
  Company Number: 163-21880-11042021

PATIENT
  Age: 74 Year
  Sex: Male

DRUGS (31)
  1. ADVAIR HFA [Concomitant]
  2. EUCERIN (EUCERIN CREME) [Concomitant]
  3. LOTENSIN [Concomitant]
  4. SENNA (SENNA) [Concomitant]
  5. FUROSEMIDE [Concomitant]
  6. PREPARATION H (PREPARATION H (CREAM) [Concomitant]
  7. REVLIMID [Suspect]
     Indication: MULTIPLE MYELOMA
     Dosage: 25 MG, 1 IN 1 D, PO, 15 MG, 1 IN 1 D, PO, 10 MG, QD, PO
     Route: 048
     Dates: start: 20110101, end: 20110413
  8. REVLIMID [Suspect]
     Indication: MULTIPLE MYELOMA
     Dosage: 25 MG, 1 IN 1 D, PO, 15 MG, 1 IN 1 D, PO, 10 MG, QD, PO
     Route: 048
     Dates: start: 20101201
  9. REVLIMID [Suspect]
     Indication: MULTIPLE MYELOMA
     Dosage: 25 MG, 1 IN 1 D, PO, 15 MG, 1 IN 1 D, PO, 10 MG, QD, PO
     Route: 048
     Dates: start: 20100223
  10. ALBUTEROL [Concomitant]
  11. AMARYL [Concomitant]
  12. DEXAMETHASONE [Concomitant]
  13. COLACE (DOCUSATE SODIUM) [Concomitant]
  14. NOVOLOG MIX 70/30 [Concomitant]
  15. TUCKS (TUCKS) [Concomitant]
  16. ALUMINUM HYDROXIDE AND MAGNESIUM TRISILICATE [Concomitant]
  17. PROSCAR [Concomitant]
  18. JANUVIA [Concomitant]
  19. ACYCLOVIR [Concomitant]
  20. HYDROCODONE APAP (PROCET /USA/) [Concomitant]
  21. COMPAZINE [Concomitant]
  22. GABAPENTIN [Concomitant]
  23. LIPITOR [Concomitant]
  24. VITAMIN D [Concomitant]
  25. HYTRIN [Concomitant]
  26. SIMVASTATIN [Concomitant]
  27. MIRALAX [Concomitant]
  28. FOLIC ACID [Concomitant]
  29. ASPIRIN [Concomitant]
  30. METFORMIN HCL [Concomitant]
  31. EROCALCIFEROL (ERGOCLCIFEROL) [Concomitant]

REACTIONS (1)
  - PANCYTOPENIA [None]
